FAERS Safety Report 6162801-1 (Version None)
Quarter: 2009Q2

REPORT INFORMATION
  Report Type: 
  Country: None (occurrence: None)
  Receive Date: 20090417
  Receipt Date: 20090403
  Transmission Date: 20091009
  Serious: Yes (Other)
  Sender: FDA-Public Use
  Company Number: 2009S1005838

PATIENT
  Age: 57 Year
  Sex: Female

DRUGS (1)
  1. TAMOXIFEN CITRATE [Suspect]
     Indication: BREAST CANCER
     Dosage: 20 MG;DAILY;ORAL
     Route: 048

REACTIONS (11)
  - ARTERIAL OCCLUSIVE DISEASE [None]
  - CEREBROVASCULAR DISORDER [None]
  - PAIN [None]
  - PAPILLOEDEMA [None]
  - RASH [None]
  - RETINAL EXUDATES [None]
  - RETINAL HAEMORRHAGE [None]
  - RETINAL ISCHAEMIA [None]
  - SKIN NECROSIS [None]
  - VASCULITIS [None]
  - VON WILLEBRAND'S FACTOR ANTIGEN INCREASED [None]
